FAERS Safety Report 18590638 (Version 1)
Quarter: 2020Q4

REPORT INFORMATION
  Report Type: Spontaneous
  Country: IN (occurrence: IN)
  Receive Date: 20201208
  Receipt Date: 20201208
  Transmission Date: 20210114
  Serious: Yes (Hospitalization)
  Sender: FDA-Public Use
  Company Number: IN-ENDO PHARMACEUTICALS INC-2020-007575

PATIENT
  Age: 65 Year
  Sex: Male

DRUGS (3)
  1. COLY-MYCIN M [Suspect]
     Active Substance: COLISTIMETHATE SODIUM
     Indication: PNEUMONIA ACINETOBACTER
     Dosage: 2 MILLION UNITS 8 HOURLY
     Route: 065
  2. CEFOPERAZONE W/SULBACTAM [Concomitant]
     Active Substance: CEFOPERAZONE\SULBACTAM
     Indication: PNEUMONIA ACINETOBACTER
  3. COLY-MYCIN M [Suspect]
     Active Substance: COLISTIMETHATE SODIUM
     Indication: KLEBSIELLA INFECTION
     Dosage: UNK UNKNOWN, UNKNOWN
     Route: 065

REACTIONS (3)
  - Bartter^s syndrome [Recovered/Resolved]
  - Supraventricular tachycardia [Recovered/Resolved]
  - Off label use [Recovered/Resolved]
